FAERS Safety Report 24649714 (Version 1)
Quarter: 2024Q4

REPORT INFORMATION
  Report Type: Report from Study
  Country: NL (occurrence: NL)
  Receive Date: 20241121
  Receipt Date: 20241121
  Transmission Date: 20250114
  Serious: Yes (Hospitalization, Other)
  Sender: ABBVIE
  Company Number: NL-ABBVIE-5943149

PATIENT
  Sex: Female

DRUGS (6)
  1. CARBIDOPA\LEVODOPA [Suspect]
     Active Substance: CARBIDOPA\LEVODOPA
     Indication: Parkinson^s disease
     Dosage: CD:7.0ML/H; CND:5.6ML/H/DURATION TEXT: REMAINS AT 24 HOURS
     Route: 050
     Dates: start: 20240606, end: 20240618
  2. CARBIDOPA\LEVODOPA [Suspect]
     Active Substance: CARBIDOPA\LEVODOPA
     Dosage: MD:7.5ML; CD:6.8ML/H; ED:4.00ML; CND:5.6ML/H; END:2.00ML,?DURATION: REMAINS AT 24 HOURS, DOSE RED...
     Route: 050
     Dates: start: 20241113
  3. CARBIDOPA\LEVODOPA [Suspect]
     Active Substance: CARBIDOPA\LEVODOPA
     Dosage: MD:7.5ML; CD:7.0ML/H; ED:4.00ML; CND:5.6ML/H; END:2.00ML,?DURATION: REMAINS AT 24 HOURS
     Route: 050
     Dates: start: 20240819, end: 20240924
  4. CARBIDOPA\LEVODOPA [Suspect]
     Active Substance: CARBIDOPA\LEVODOPA
     Dosage: MD:7.5ML; CD:7.0ML/H; ED:4.00ML; CND:5.5ML/H; END:2.00ML, ?DURATION: REMAINS AT 24 HOURS
     Route: 050
     Dates: start: 20240618, end: 20240819
  5. CARBIDOPA\LEVODOPA [Suspect]
     Active Substance: CARBIDOPA\LEVODOPA
     Route: 050
     Dates: start: 20191014
  6. CARBIDOPA\LEVODOPA [Suspect]
     Active Substance: CARBIDOPA\LEVODOPA
     Dosage: MD:7.5ML; CD:6.8ML/H; ED:4.00ML; CND:5.6ML/H; END:2.00ML,?DURATION: REMAINS AT 24 HOURS
     Route: 050
     Dates: start: 20240924, end: 20241113

REACTIONS (23)
  - Cardiac failure [Not Recovered/Not Resolved]
  - Malnutrition [Recovering/Resolving]
  - Parkinson^s disease [Recovering/Resolving]
  - Hospitalisation [Recovered/Resolved]
  - Stoma site infection [Not Recovered/Not Resolved]
  - Stoma site abscess [Not Recovered/Not Resolved]
  - Vomiting [Not Recovered/Not Resolved]
  - Dysphagia [Not Recovered/Not Resolved]
  - Dyskinesia [Not Recovered/Not Resolved]
  - Inflammatory marker increased [Not Recovered/Not Resolved]
  - Middle insomnia [Not Recovered/Not Resolved]
  - Stoma site reaction [Not Recovered/Not Resolved]
  - Therapeutic product effect variable [Not Recovered/Not Resolved]
  - Stoma site discharge [Not Recovered/Not Resolved]
  - Unevaluable event [Not Recovered/Not Resolved]
  - Rehabilitation therapy [Not Recovered/Not Resolved]
  - Restlessness [Not Recovered/Not Resolved]
  - Weight decreased [Not Recovered/Not Resolved]
  - Decreased appetite [Not Recovered/Not Resolved]
  - Abnormal dreams [Not Recovered/Not Resolved]
  - Enteral nutrition [Recovered/Resolved]
  - Taste disorder [Not Recovered/Not Resolved]
  - Stoma site erythema [Not Recovered/Not Resolved]

NARRATIVE: CASE EVENT DATE: 20240901
